FAERS Safety Report 5657040-4 (Version None)
Quarter: 2008Q1

REPORT INFORMATION
  Report Type: 
  Country: None (occurrence: None)
  Receive Date: 20080307
  Receipt Date: 20080307
  Transmission Date: 20080703
  Serious: Yes (Other)
  Sender: FDA-Public Use
  Company Number: None

PATIENT
  Age: 41 Year
  Sex: Female
  Weight: 52.1637 kg

DRUGS (1)
  1. HYDRALAZINE HCL [Suspect]
     Indication: MOOD SWINGS
     Dosage: 2 THREE TIMES A DAY PO
     Route: 048
     Dates: start: 20070828, end: 20071012

REACTIONS (8)
  - DIZZINESS [None]
  - DRUG DISPENSING ERROR [None]
  - DYSPNOEA [None]
  - MEDICATION ERROR [None]
  - MIGRAINE [None]
  - PALPITATIONS [None]
  - VISION BLURRED [None]
  - WRONG DRUG ADMINISTERED [None]
